FAERS Safety Report 8009385-0 (Version None)
Quarter: 2011Q4

REPORT INFORMATION
  Report Type: 
  Country: None (occurrence: None)
  Receive Date: 20111227
  Receipt Date: 20111221
  Transmission Date: 20120403
  Serious: Yes (Life-Threatening, Other)
  Sender: FDA-Public Use
  Company Number: GR-BAXTER-2011BH012907

PATIENT
  Age: 10 Year
  Sex: Female
  Weight: 43 kg

DRUGS (3)
  1. GAMMAGARD LIQUID [Suspect]
     Indication: MYASTHENIC SYNDROME
     Route: 042
     Dates: start: 20110406, end: 20110406
  2. GAMMAGARD LIQUID [Suspect]
     Indication: OFF LABEL USE
     Route: 042
     Dates: start: 20110406, end: 20110406
  3. MEDROL [Concomitant]
     Indication: MYASTHENIC SYNDROME
     Route: 048

REACTIONS (4)
  - DRUG HYPERSENSITIVITY [None]
  - HYPERSENSITIVITY [None]
  - OFF LABEL USE [None]
  - RASH MACULO-PAPULAR [None]
